FAERS Safety Report 12759200 (Version 1)
Quarter: 2016Q3

REPORT INFORMATION
  Report Type: Spontaneous
  Country: US (occurrence: US)
  Receive Date: 20160919
  Receipt Date: 20160919
  Transmission Date: 20161109
  Serious: Yes (Other)
  Sender: FDA-Public Use
  Company Number: US-SMITH AND NEPHEW, INC-2016SMT00785

PATIENT
  Sex: Female

DRUGS (1)
  1. REGRANEX [Suspect]
     Active Substance: BECAPLERMIN
     Dosage: UNK
     Dates: start: 2016

REACTIONS (2)
  - Off label use [Recovered/Resolved]
  - Toe amputation [Unknown]

NARRATIVE: CASE EVENT DATE: 2016
